FAERS Safety Report 25502825 (Version 1)
Quarter: 2025Q3

REPORT INFORMATION
  Report Type: Spontaneous
  Country: CN (occurrence: CN)
  Receive Date: 20250702
  Receipt Date: 20250702
  Transmission Date: 20251021
  Serious: Yes (Hospitalization, Other)
  Sender: SANOFI AVENTIS
  Company Number: CN-SA-2025SA181916

PATIENT
  Age: 81 Year
  Sex: Female
  Weight: 69 kg

DRUGS (3)
  1. PLAVIX [Suspect]
     Active Substance: CLOPIDOGREL BISULFATE
     Indication: Antiplatelet therapy
     Dosage: 75 MG, BID
     Route: 048
     Dates: start: 20250201, end: 20250605
  2. NICORANDIL [Concomitant]
     Active Substance: NICORANDIL
     Dosage: 1 DF, TID
     Route: 065
  3. METOPROLOL TARTRATE [Concomitant]
     Active Substance: METOPROLOL TARTRATE
     Dosage: 0.5 DF, BID
     Route: 065

REACTIONS (4)
  - Chronic gastritis [Unknown]
  - Upper gastrointestinal haemorrhage [Recovering/Resolving]
  - Haematochezia [Recovering/Resolving]
  - Asthenia [Unknown]

NARRATIVE: CASE EVENT DATE: 20250301
